FAERS Safety Report 9002885 (Version 1)
Quarter: 2013Q1

REPORT INFORMATION
  Report Type: Spontaneous
  Country: NO (occurrence: NO)
  Receive Date: 20130108
  Receipt Date: 20130108
  Transmission Date: 20140127
  Serious: Yes (Hospitalization)
  Sender: FDA-Public Use
  Company Number: NO-PFIZER INC-2013002176

PATIENT
  Age: 84 Year
  Sex: 0

DRUGS (1)
  1. TOVIAZ [Suspect]

REACTIONS (2)
  - Confusional state [Unknown]
  - Urinary retention [Unknown]
